FAERS Safety Report 8380452-5 (Version None)
Quarter: 2012Q2

REPORT INFORMATION
  Report Type: 
  Country: None (occurrence: None)
  Receive Date: 20120523
  Receipt Date: 20120518
  Transmission Date: 20120825
  Serious: Yes (Other)
  Sender: FDA-Public Use
  Company Number: US-GLAXOSMITHKLINE-A0978215A

PATIENT
  Sex: Male

DRUGS (5)
  1. ADVAIR DISKUS 100/50 [Suspect]
     Indication: CHRONIC OBSTRUCTIVE PULMONARY DISEASE
     Dosage: 1PUFF SINGLE DOSE
     Route: 055
     Dates: start: 20120516, end: 20120516
  2. LISINOPRIL [Concomitant]
  3. COMBIVENT [Concomitant]
  4. METFORMIN HCL [Concomitant]
  5. WATER PILL [Concomitant]

REACTIONS (5)
  - DYSPNOEA [None]
  - CHEST DISCOMFORT [None]
  - ASTHMA [None]
  - NERVOUSNESS [None]
  - DISCOMFORT [None]
